FAERS Safety Report 5626533-8 (Version None)
Quarter: 2008Q1

REPORT INFORMATION
  Report Type: 
  Country: None (occurrence: None)
  Receive Date: 20080214
  Receipt Date: 20080213
  Transmission Date: 20080703
  Serious: Yes (Hospitalization)
  Sender: FDA-Public Use
  Company Number: CA-WYE-G00938608

PATIENT

DRUGS (1)
  1. TACROLIMUS [Suspect]

REACTIONS (1)
  - TRANSPLANT REJECTION [None]
